FAERS Safety Report 9419021 (Version 1)
Quarter: 2013Q3

REPORT INFORMATION
  Report Type: Report from Study
  Country: US (occurrence: US)
  Receive Date: 20130725
  Receipt Date: 20130725
  Transmission Date: 20140515
  Serious: Yes (Other)
  Sender: FDA-Public Use
  Company Number: PHEH2013US015668

PATIENT
  Sex: Male

DRUGS (2)
  1. ZORTRESS [Suspect]
     Indication: RENAL TRANSPLANT
     Dosage: 0.5 MG, BID
     Route: 048
  2. NEORAL [Concomitant]
     Dosage: 75 MG, BID

REACTIONS (2)
  - Limb injury [Unknown]
  - Haematoma [Unknown]
